FAERS Safety Report 6887565-5 (Version None)
Quarter: 2010Q3

REPORT INFORMATION
  Report Type: 
  Country: None (occurrence: None)
  Receive Date: 20100730
  Receipt Date: 20100728
  Transmission Date: 20110219
  Serious: Yes (Hospitalization, Other)
  Sender: FDA-Public Use
  Company Number: PL-ROXANE LABORATORIES, INC.-2010-RO-00934RO

PATIENT
  Age: 18 Year
  Sex: Female

DRUGS (6)
  1. LAMOTRIGINE [Suspect]
     Indication: EPILEPSY
     Dosage: 5 MG
  2. LEVETIRACETAM [Suspect]
     Indication: EPILEPSY
     Dosage: 1000 MG
  3. DEXAMETHASONE [Suspect]
     Dosage: 24 MG
     Route: 030
  4. VALPROIC ACID [Suspect]
     Indication: EPILEPSY
     Dosage: 1000 MG
  5. ROVAMYCIN [Suspect]
     Indication: PHARYNGITIS
  6. CEFUROXIME [Suspect]
     Indication: TONSILLITIS
     Route: 042

REACTIONS (4)
  - DRUG ERUPTION [None]
  - DRUG INEFFECTIVE [None]
  - DRUG RASH WITH EOSINOPHILIA AND SYSTEMIC SYMPTOMS [None]
  - PARTIAL SEIZURES [None]
